FAERS Safety Report 8246676-2 (Version None)
Quarter: 2012Q1

REPORT INFORMATION
  Report Type: 
  Country: None (occurrence: None)
  Receive Date: 20120330
  Receipt Date: 20120322
  Transmission Date: 20120608
  Serious: Yes (Death)
  Sender: FDA-Public Use
  Company Number: US-ROXANE LABORATORIES, INC.-2012-EU-01655GD

PATIENT

DRUGS (14)
  1. DIHYDROCODEINE BITARTRATE INJ [Suspect]
  2. MIRTAZAPINE [Concomitant]
  3. SIMVASTATIN [Concomitant]
  4. NORMEPERIDINE [Concomitant]
  5. ASPIRIN [Concomitant]
  6. ACETAMINOPHEN AND OXYCODONE HCL [Suspect]
  7. WARFARIN SODIUM [Concomitant]
  8. METHADONE HCL [Suspect]
  9. MORPHINE SULFATE [Suspect]
  10. HYDROCODONE BITARTRATE [Suspect]
  11. CLOPIDOGREL [Concomitant]
  12. PANTOPRAZOLE [Concomitant]
  13. LISINOPRIL [Concomitant]
  14. CARVEDILOL [Concomitant]

REACTIONS (2)
  - TOXICITY TO VARIOUS AGENTS [None]
  - OVERDOSE [None]
